FAERS Safety Report 16526180 (Version 1)
Quarter: 2019Q3

REPORT INFORMATION
  Report Type: Spontaneous
  Country: CA (occurrence: CA)
  Receive Date: 20190703
  Receipt Date: 20190703
  Transmission Date: 20191004
  Serious: Yes (Hospitalization, Other)
  Sender: FDA-Public Use
  Company Number: CA-AUROBINDO-AUR-APL-2019-036859

PATIENT

DRUGS (1)
  1. LAMOTRIGINE TABLET [Suspect]
     Active Substance: LAMOTRIGINE
     Indication: DEPRESSION
     Dosage: 25 MILLIGRAM, TWO TIMES A DAY
     Route: 065

REACTIONS (9)
  - Suicidal ideation [Unknown]
  - Balance disorder [Unknown]
  - Feeling abnormal [Unknown]
  - Insomnia [Unknown]
  - Decreased appetite [Unknown]
  - Fatigue [Unknown]
  - Dry mouth [Unknown]
  - Daydreaming [Unknown]
  - Nausea [Unknown]
